FAERS Safety Report 6874965-2 (Version None)
Quarter: 2010Q3

REPORT INFORMATION
  Report Type: 
  Country: None (occurrence: None)
  Receive Date: 20100723
  Receipt Date: 20100713
  Transmission Date: 20110219
  Serious: Yes (Life-Threatening)
  Sender: FDA-Public Use
  Company Number: 009886

PATIENT
  Age: 64 Year
  Sex: Male

DRUGS (9)
  1. PLETAL [Suspect]
     Dosage: 100 MG
     Route: 048
     Dates: start: 20070701, end: 20071201
  2. LORZAAR (LOSARTAN POTASSIUM) [Concomitant]
  3. LORZAAR PLUS (HYDROCHLORIDE, LOSARTAN POTASSIUM) [Concomitant]
  4. AMLODIPINE [Concomitant]
  5. CARVEDILOL [Concomitant]
  6. ATORVASTATIN CALCIUM [Concomitant]
  7. EZETIMIBE [Concomitant]
  8. GLIMEPIRIDE [Concomitant]
  9. ASPIRIN [Concomitant]

REACTIONS (3)
  - CARDIAC FAILURE [None]
  - CARDIOGENIC SHOCK [None]
  - ECHOCARDIOGRAM ABNORMAL [None]
